FAERS Safety Report 5502214-6 (Version None)
Quarter: 2007Q4

REPORT INFORMATION
  Report Type: 
  Country: None (occurrence: None)
  Receive Date: 20071030
  Receipt Date: 20071022
  Transmission Date: 20080405
  Serious: Yes (Death, Hospitalization)
  Sender: FDA-Public Use
  Company Number: FR-SANOFI-SYNTHELABO-A02200702613

PATIENT
  Age: 69 Year
  Sex: Male

DRUGS (4)
  1. SOLU-MEDROL [Suspect]
     Indication: DRUG USE FOR UNKNOWN INDICATION
     Route: 042
     Dates: start: 20070726, end: 20070726
  2. ONDANSETRON [Suspect]
     Indication: VOMITING
     Route: 042
     Dates: start: 20070726, end: 20070726
  3. GEMZAR [Suspect]
     Indication: PANCREATIC CARCINOMA
     Route: 042
     Dates: start: 20070726, end: 20070726
  4. ELOXATIN [Suspect]
     Indication: PANCREATIC CARCINOMA
     Route: 042
     Dates: start: 20070726, end: 20070726

REACTIONS (6)
  - ACUTE RESPIRATORY FAILURE [None]
  - GINGIVAL BLEEDING [None]
  - PYREXIA [None]
  - SEPSIS [None]
  - THROMBOCYTOPENIA [None]
  - TONGUE HAEMATOMA [None]
